FAERS Safety Report 5149237-7 (Version None)
Quarter: 2006Q4

REPORT INFORMATION
  Report Type: 
  Country: None (occurrence: None)
  Receive Date: 20061113
  Receipt Date: 20050920
  Transmission Date: 20070319
  Serious: No
  Sender: FDA-Public Use
  Company Number: 423361

PATIENT
  Age: 83 Year
  Sex: Female

DRUGS (2)
  1. COREG [Suspect]
     Indication: HYPERTENSION
     Dosage: 25MG TWICE PER DAY
     Route: 048
  2. ADALAT [Concomitant]

REACTIONS (1)
  - DRUG INEFFECTIVE [None]
